FAERS Safety Report 4730875-8 (Version None)
Quarter: 2005Q3

REPORT INFORMATION
  Report Type: 
  Country: None (occurrence: None)
  Receive Date: 20050728
  Receipt Date: 20050627
  Transmission Date: 20060218
  Serious: Yes (Other)
  Sender: FDA-Public Use
  Company Number: ZICO001208

PATIENT
  Age: 50 Year
  Sex: Female

DRUGS (1)
  1. PRIALT [Suspect]
     Dosage: 0.07 MCG/DAY INTRATHECAL
     Route: 037

REACTIONS (3)
  - AGITATION [None]
  - ANXIETY [None]
  - SUICIDAL IDEATION [None]
